FAERS Safety Report 6903328-6 (Version None)
Quarter: 2010Q3

REPORT INFORMATION
  Report Type: 
  Country: None (occurrence: None)
  Receive Date: 20100803
  Receipt Date: 20080925
  Transmission Date: 20110219
  Serious: Yes (Other)
  Sender: FDA-Public Use
  Company Number: US-PFIZER INC-2008079249

PATIENT
  Sex: Female
  Weight: 59.9 kg

DRUGS (4)
  1. LYRICA [Suspect]
     Indication: BACK PAIN
     Route: 048
     Dates: start: 20080701
  2. SYNTHROID [Concomitant]
     Indication: THYROID DISORDER
  3. CELEBREX [Concomitant]
  4. ANTIHYPERTENSIVES [Concomitant]
     Indication: HYPERTENSION

REACTIONS (2)
  - DISCOMFORT [None]
  - WEIGHT INCREASED [None]
